FAERS Safety Report 13968563 (Version 3)
Quarter: 2018Q2

REPORT INFORMATION
  Report Type: Spontaneous
  Country: FR (occurrence: FR)
  Receive Date: 20170914
  Receipt Date: 20180621
  Transmission Date: 20180711
  Serious: Yes (Hospitalization, Other)
  Sender: FDA-Public Use
  Company Number: FR-TEVA-806548ROM

PATIENT
  Age: 49 Year
  Sex: Male

DRUGS (16)
  1. PANTOPRAZOLE SODIUM. [Suspect]
     Active Substance: PANTOPRAZOLE SODIUM
     Indication: GASTRIC ULCER
     Route: 048
     Dates: start: 20170719
  2. CUBICIN [Suspect]
     Active Substance: DAPTOMYCIN
     Route: 042
     Dates: start: 20170729
  3. KABI GLUTAMINE [Suspect]
     Active Substance: GLUTAMINE
     Indication: SEPSIS
     Route: 042
     Dates: start: 20170713
  4. XATRAL [Concomitant]
     Active Substance: ALFUZOSIN
     Route: 065
  5. TAZOCILLINE [Concomitant]
     Active Substance: PIPERACILLIN SODIUM\TAZOBACTAM SODIUM
     Route: 065
     Dates: start: 20170713
  6. CORDARONE [Suspect]
     Active Substance: AMIODARONE HYDROCHLORIDE
     Indication: ARRHYTHMIA
     Route: 048
     Dates: start: 201703
  7. DEROXAT [Suspect]
     Active Substance: PAROXETINE HYDROCHLORIDE
     Indication: DEPRESSION
     Route: 048
     Dates: start: 201703
  8. SANDOSTATINE [Suspect]
     Active Substance: OCTREOTIDE ACETATE
     Indication: PRODUCT USED FOR UNKNOWN INDICATION
     Route: 065
     Dates: start: 201703
  9. ACETAMINOPHEN. [Concomitant]
     Active Substance: ACETAMINOPHEN
     Route: 065
  10. ATORVASTATINE EG [Suspect]
     Active Substance: ATORVASTATIN CALCIUM
     Indication: HYPERCHOLESTEROLAEMIA
     Route: 048
     Dates: start: 201703
  11. VENTOLINE (ALBUTEROL) [Concomitant]
     Active Substance: ALBUTEROL
     Route: 065
  12. CUBICIN [Suspect]
     Active Substance: DAPTOMYCIN
     Indication: SEPSIS
     Route: 042
     Dates: start: 20170713, end: 20170727
  13. PREVISCAN (FLUINDIONE) [Suspect]
     Active Substance: FLUINDIONE
     Indication: THROMBOSIS PROPHYLAXIS
     Route: 048
     Dates: start: 201703
  14. PIPERACILLIN AND TAZOBACTAM [Suspect]
     Active Substance: PIPERACILLIN SODIUM\TAZOBACTAM SODIUM
     Indication: SEPSIS
     Route: 042
     Dates: start: 20170713, end: 20170727
  15. PIPERACILLIN AND TAZOBACTAM [Suspect]
     Active Substance: PIPERACILLIN SODIUM\TAZOBACTAM SODIUM
     Route: 042
     Dates: start: 20170729
  16. BISOPROLOL [Concomitant]
     Active Substance: BISOPROLOL
     Route: 065

REACTIONS (3)
  - Neutropenia [Not Recovered/Not Resolved]
  - Lymphopenia [Not Recovered/Not Resolved]
  - Leukopenia [Not Recovered/Not Resolved]

NARRATIVE: CASE EVENT DATE: 20170719
